FAERS Safety Report 23353874 (Version 1)
Quarter: 2024Q1

REPORT INFORMATION
  Report Type: Spontaneous
  Country: PL (occurrence: PL)
  Receive Date: 20240101
  Receipt Date: 20240101
  Transmission Date: 20240410
  Serious: Yes (Death, Life-Threatening, Hospitalization, Other)
  Sender: FDA-Public Use
  Company Number: PL-MERCA-20230701

PATIENT
  Age: 46 Year
  Sex: Female

DRUGS (6)
  1. ACETAMINOPHEN [Interacting]
     Active Substance: ACETAMINOPHEN
     Indication: Arthralgia
     Dosage: 1000 MILLIGRAM, EVERY OTHER DAY (~2 X 1 000 MG DURING THE DAY )
     Route: 065
  2. METOPROLOL [Interacting]
     Active Substance: METOPROLOL
     Indication: Atrial fibrillation
     Dosage: 50 MILLIGRAM, ONCE A DAY
     Route: 065
  3. OMEPRAZOLE [Interacting]
     Active Substance: OMEPRAZOLE
     Indication: Abdominal pain
     Dosage: 40 MILLIGRAM, ONCE A DAY
     Route: 065
  4. ACETAMINOPHEN\DIPHENHYDRAMINE [Interacting]
     Active Substance: ACETAMINOPHEN\DIPHENHYDRAMINE
     Indication: Arthralgia
     Dosage: BEFORE BEDTIME
     Route: 065
  5. PROPAFENONE [Interacting]
     Active Substance: PROPAFENONE
     Indication: Atrial fibrillation
     Dosage: 150 MILLIGRAM, EVERY OTHER DAY
     Route: 065
  6. WARFARIN [Suspect]
     Active Substance: WARFARIN
     Indication: Osteoarthritis
     Dosage: VARIOUS DOSAGES DEPENDENT ON INR
     Route: 065

REACTIONS (2)
  - Subarachnoid haemorrhage [Fatal]
  - Drug interaction [Fatal]
